FAERS Safety Report 7404547-5 (Version None)
Quarter: 2011Q2

REPORT INFORMATION
  Report Type: 
  Country: None (occurrence: None)
  Receive Date: 20110411
  Receipt Date: 20110328
  Transmission Date: 20111010
  Serious: Yes (Hospitalization, Other)
  Sender: FDA-Public Use
  Company Number: US-MYLANLABS-2011S1006644

PATIENT
  Age: 59 Year
  Sex: Male

DRUGS (2)
  1. MINAX [Suspect]
  2. APIXABAN [Concomitant]
     Indication: THROMBOSIS PROPHYLAXIS
     Route: 048
     Dates: start: 20100901, end: 20110105

REACTIONS (3)
  - ASTHENIA [None]
  - DIZZINESS [None]
  - BRADYCARDIA [None]
